FAERS Safety Report 8535483-9 (Version None)
Quarter: 2012Q3

REPORT INFORMATION
  Report Type: 
  Country: None (occurrence: None)
  Receive Date: 20120718
  Receipt Date: 20120718
  Transmission Date: 20120928
  Serious: Yes (Other)
  Sender: FDA-Public Use
  Company Number: None

PATIENT
  Sex: Female

DRUGS (1)
  1. GLYCOPYRROLATE [Suspect]
     Indication: BRADYCARDIA
     Dosage: 0.5 MG ONE IVP
     Route: 042
     Dates: start: 20120709

REACTIONS (3)
  - HYPERTENSION [None]
  - DRUG EFFECT INCREASED [None]
  - TACHYCARDIA [None]
